FAERS Safety Report 7790920-2 (Version None)
Quarter: 2011Q3

REPORT INFORMATION
  Report Type: 
  Country: None (occurrence: None)
  Receive Date: 20110930
  Receipt Date: 20110930
  Transmission Date: 20111222
  Serious: Yes (Hospitalization)
  Sender: FDA-Public Use
  Company Number: None

PATIENT
  Age: 60 Year
  Sex: Male

DRUGS (1)
  1. INCIVEK [Suspect]
     Dosage: 750MG
     Route: 048

REACTIONS (2)
  - OEDEMA PERIPHERAL [None]
  - FLUID RETENTION [None]
